FAERS Safety Report 11501305 (Version 2)
Quarter: 2015Q3

REPORT INFORMATION
  Report Type: Spontaneous
  Country: NO (occurrence: NO)
  Receive Date: 20150914
  Receipt Date: 20150923
  Transmission Date: 20151125
  Serious: Yes (Hospitalization)
  Sender: FDA-Public Use
  Company Number: NO-PFIZER INC-2015300901

PATIENT
  Age: 37 Year
  Sex: Male

DRUGS (1)
  1. SULFASALAZINE. [Suspect]
     Active Substance: SULFASALAZINE
     Indication: ARTHRITIS REACTIVE
     Dosage: 1 DF, UNK
     Dates: start: 20150805, end: 20150816

REACTIONS (8)
  - Systemic inflammatory response syndrome [Recovering/Resolving]
  - Cough [Recovering/Resolving]
  - Rhabdomyolysis [Recovering/Resolving]
  - Rash macular [Recovering/Resolving]
  - Electrolyte imbalance [Recovering/Resolving]
  - Thrombocytopenia [Recovering/Resolving]
  - Pyrexia [Recovering/Resolving]
  - Sinus tachycardia [Recovering/Resolving]

NARRATIVE: CASE EVENT DATE: 20150812
